FAERS Safety Report 24523748 (Version 2)
Quarter: 2024Q4

REPORT INFORMATION
  Report Type: Report from Study
  Country: BE (occurrence: BE)
  Receive Date: 20241018
  Receipt Date: 20241123
  Transmission Date: 20250115
  Serious: Yes (Death, Hospitalization)
  Sender: CSL BEHRING
  Company Number: BE-BEH-2024173808

PATIENT
  Age: 84 Year
  Sex: Female
  Weight: 60 kg

DRUGS (1)
  1. HIZENTRA [Suspect]
     Active Substance: HUMAN IMMUNOGLOBULIN G
     Indication: Primary immunodeficiency syndrome
     Dosage: 6 G, QW
     Route: 058

REACTIONS (3)
  - Death [Fatal]
  - Pneumonia [Unknown]
  - Hypoxia [Unknown]

NARRATIVE: CASE EVENT DATE: 20241008
